FAERS Safety Report 20171970 (Version 1)
Quarter: 2021Q4

REPORT INFORMATION
  Report Type: Spontaneous
  Country: GB (occurrence: GB)
  Receive Date: 20211210
  Receipt Date: 20211210
  Transmission Date: 20220303
  Serious: Yes (Other)
  Sender: FDA-Public Use
  Company Number: None

PATIENT
  Age: 47 Year
  Sex: Female

DRUGS (2)
  1. FLUCONAZOLE [Suspect]
     Active Substance: FLUCONAZOLE
     Indication: Vulvovaginal candidiasis
     Dosage: 150MG AND 50MG
     Route: 048
     Dates: start: 20211010, end: 20211108
  2. PROBIOTICS NOS [Concomitant]
     Active Substance: PROBIOTICS NOS

REACTIONS (8)
  - Vulvovaginal pain [Recovering/Resolving]
  - Rash vesicular [Recovering/Resolving]
  - Vulvovaginal rash [Recovering/Resolving]
  - Rash [Recovering/Resolving]
  - Anxiety [Recovering/Resolving]
  - Suicidal ideation [Recovering/Resolving]
  - Pollakiuria [Recovering/Resolving]
  - Proctalgia [Recovering/Resolving]

NARRATIVE: CASE EVENT DATE: 20211017
